FAERS Safety Report 9462079 (Version 3)
Quarter: 2013Q3

REPORT INFORMATION
  Report Type: Spontaneous
  Country: US (occurrence: US)
  Receive Date: 20130816
  Receipt Date: 20130927
  Transmission Date: 20140515
  Serious: Yes (Other)
  Sender: FDA-Public Use
  Company Number: US-PFIZER INC-2013237315

PATIENT
  Age: 37 Year
  Sex: Female
  Weight: 56.69 kg

DRUGS (4)
  1. LYRICA [Suspect]
     Indication: NEURALGIA
     Dosage: 300 MG, 2X/DAY
     Route: 048
     Dates: start: 2006, end: 201307
  2. LYRICA [Suspect]
     Indication: NERVOUS SYSTEM DISORDER
  3. GABAPENTIN [Concomitant]
     Dosage: UNK
  4. NORCO [Concomitant]
     Dosage: UNK

REACTIONS (5)
  - Malignant melanoma [Unknown]
  - Neoplasm [Unknown]
  - Cyst [Unknown]
  - Weight decreased [Unknown]
  - Paraesthesia [Unknown]
